FAERS Safety Report 19820018 (Version 1)
Quarter: 2021Q3

REPORT INFORMATION
  Report Type: Spontaneous
  Country: US (occurrence: US)
  Receive Date: 20210910
  Receipt Date: 20210910
  Transmission Date: 20211014
  Serious: No
  Sender: FDA-Public Use
  Company Number: None

PATIENT
  Sex: Female

DRUGS (2)
  1. MENOPUR [Suspect]
     Active Substance: FOLLITROPIN\LUTEINIZING HORMONE
     Indication: INFERTILITY FEMALE
     Route: 058
     Dates: start: 20210416
  2. GONAL?F RFF REDI?JECT [Suspect]
     Active Substance: FOLLITROPIN
     Indication: INFERTILITY FEMALE
     Dosage: ?          OTHER DOSE:300 UNITS;?
     Route: 058
     Dates: start: 20210416

REACTIONS (1)
  - Hypersensitivity [None]
